FAERS Safety Report 24875223 (Version 1)
Quarter: 2025Q1

REPORT INFORMATION
  Report Type: Spontaneous
  Country: US (occurrence: None)
  Receive Date: 20250122
  Receipt Date: 20250122
  Transmission Date: 20250409
  Serious: Yes (Death)
  Sender: FDA-CTU
  Company Number: None

PATIENT
  Age: 55 Year
  Sex: Female
  Weight: 64.5 kg

DRUGS (2)
  1. CEFTRIAXONE SODIUM [Suspect]
     Active Substance: CEFTRIAXONE SODIUM
     Indication: Pneumonia
     Route: 042
     Dates: start: 20250103, end: 20250103
  2. STERILE WATER FOR INJECTION [Suspect]
     Active Substance: WATER
     Indication: Product used for unknown indication
     Route: 042
     Dates: start: 20250103, end: 20250103

REACTIONS (6)
  - Cardiac arrest [None]
  - Dyspnoea [None]
  - Cough [None]
  - Chest pain [None]
  - Leukocytosis [None]
  - Neutrophil count increased [None]

NARRATIVE: CASE EVENT DATE: 20250103
